FAERS Safety Report 11071242 (Version 1)
Quarter: 2015Q2

REPORT INFORMATION
  Report Type: Spontaneous
  Country: US (occurrence: None)
  Receive Date: 20150427
  Receipt Date: 20150427
  Transmission Date: 20150821
  Serious: Yes (Hospitalization)
  Sender: FDA-Public Use
  Company Number: None

PATIENT
  Age: 40 Year
  Sex: Female

DRUGS (9)
  1. CEPHALEXIN. [Concomitant]
     Active Substance: CEPHALEXIN
  2. PREVACID [Concomitant]
     Active Substance: LANSOPRAZOLE
  3. ACYCLOVIR. [Concomitant]
     Active Substance: ACYCLOVIR
  4. LETROZOLE. [Concomitant]
     Active Substance: LETROZOLE
  5. LORAZEPAM. [Concomitant]
     Active Substance: LORAZEPAM
  6. MULTI VITAMIN [Concomitant]
     Active Substance: VITAMINS
  7. IBRANCE [Suspect]
     Active Substance: PALBOCICLIB
     Indication: BREAST CANCER
     Dosage: 125MG, QD FOR 21D, BY MOUTH
     Route: 048
     Dates: start: 20150413
  8. ZOLADEX [Concomitant]
     Active Substance: GOSERELIN ACETATE
  9. CALCIUM [Concomitant]
     Active Substance: CALCIUM

REACTIONS (1)
  - Infection [None]

NARRATIVE: CASE EVENT DATE: 20150415
